FAERS Safety Report 18031301 (Version 1)
Quarter: 2020Q3

REPORT INFORMATION
  Report Type: Spontaneous
  Country: US (occurrence: US)
  Receive Date: 20200715
  Receipt Date: 20200715
  Transmission Date: 20201103
  Serious: Yes (Hospitalization)
  Sender: FDA-Public Use
  Company Number: None

PATIENT

DRUGS (1)
  1. DEFERASIROX 90MG [Suspect]
     Active Substance: DEFERASIROX
     Route: 048
     Dates: start: 202004

REACTIONS (3)
  - Sickle cell disease [None]
  - Illness [None]
  - Iron metabolism disorder [None]
